FAERS Safety Report 10133477 (Version 1)
Quarter: 2014Q2

REPORT INFORMATION
  Report Type: Spontaneous
  Country: US (occurrence: US)
  Receive Date: 20140428
  Receipt Date: 20140428
  Transmission Date: 20141212
  Serious: No
  Sender: FDA-Public Use
  Company Number: US-PFIZER INC-2014112883

PATIENT
  Age: 64 Year
  Sex: 0

DRUGS (1)
  1. PREMARIN [Suspect]
     Dosage: 0.3 MG, 1X/DAY
     Route: 048

REACTIONS (1)
  - Drug hypersensitivity [Unknown]
